FAERS Safety Report 4579431-5 (Version None)
Quarter: 2005Q1

REPORT INFORMATION
  Report Type: 
  Country: None (occurrence: None)
  Receive Date: 20050209
  Receipt Date: 20050126
  Transmission Date: 20050727
  Serious: Yes (Hospitalization, Other)
  Sender: FDA-Public Use
  Company Number: USA050188087

PATIENT
  Age: 70 Year
  Sex: Male
  Weight: 93 kg

DRUGS (9)
  1. ALIMTA [Suspect]
     Indication: NON-SMALL CELL LUNG CANCER
     Dosage: 500 MG/M2
     Dates: start: 20041228, end: 20041228
  2. VITAMIN B-12 [Concomitant]
  3. FOLIC ACID [Concomitant]
  4. CORTICOSTEROID NOS [Concomitant]
  5. PLAVIX [Concomitant]
  6. DETROL LA [Concomitant]
  7. PROTONIX [Concomitant]
  8. LEXAPRO [Concomitant]
  9. AMBIEN [Concomitant]

REACTIONS (3)
  - ASTHENIA [None]
  - FATIGUE [None]
  - HAEMOPTYSIS [None]
